FAERS Safety Report 7574140-2 (Version None)
Quarter: 2011Q2

REPORT INFORMATION
  Report Type: 
  Country: None (occurrence: None)
  Receive Date: 20110627
  Receipt Date: 20110621
  Transmission Date: 20111010
  Serious: Yes (Death)
  Sender: FDA-Public Use
  Company Number: JP-ASTRAZENECA-2011SE29625

PATIENT
  Age: 72 Year
  Sex: Female
  Weight: 53 kg

DRUGS (12)
  1. HUSTAZOL [Concomitant]
     Route: 048
  2. P GUARD [Concomitant]
     Route: 048
  3. DECADRON [Concomitant]
     Route: 048
  4. ZOLPIDEM [Concomitant]
     Route: 048
  5. NORVASC [Concomitant]
     Route: 048
  6. IRESSA [Suspect]
     Indication: LUNG ADENOCARCINOMA RECURRENT
     Route: 048
     Dates: start: 20110412, end: 20110418
  7. MAGNESIUM SULFATE [Concomitant]
     Route: 048
  8. PRIMPERAN TAB [Concomitant]
     Route: 048
  9. PURSENNID [Concomitant]
     Route: 048
  10. ALTAT [Concomitant]
     Route: 048
  11. LOXONIN [Concomitant]
     Route: 048
  12. MUCOSTA [Concomitant]
     Route: 048

REACTIONS (2)
  - RESPIRATORY FAILURE [None]
  - INTERSTITIAL LUNG DISEASE [None]
